FAERS Safety Report 5894105-6 (Version None)
Quarter: 2008Q3

REPORT INFORMATION
  Report Type: 
  Country: None (occurrence: None)
  Receive Date: 20080923
  Receipt Date: 20080102
  Transmission Date: 20090109
  Serious: No
  Sender: FDA-Public Use
  Company Number: US-ASTRAZENECA-2008UW00152

PATIENT
  Age: 52 Year
  Sex: Female
  Weight: 108.9 kg

DRUGS (13)
  1. SEROQUEL [Suspect]
     Indication: INSOMNIA
     Route: 048
     Dates: start: 20010101
  2. SEROQUEL [Suspect]
     Route: 048
  3. LEXAPRO [Concomitant]
  4. ENALAPRIL MALEATE [Concomitant]
  5. GEODON [Concomitant]
  6. GEODON [Concomitant]
  7. KLONOPIN [Concomitant]
  8. HYDROXYZINE [Concomitant]
     Indication: INSOMNIA
  9. IMITREX [Concomitant]
     Indication: MIGRAINE
  10. OXYCODONE HCL [Concomitant]
     Indication: PAIN
  11. TOPAMAX [Concomitant]
     Indication: CONVULSION
  12. TEGRETOL [Concomitant]
     Indication: CONVULSION
  13. RITALIN [Concomitant]
     Indication: ASTHENIA

REACTIONS (10)
  - ARTHRALGIA [None]
  - BACK PAIN [None]
  - CONTUSION [None]
  - DYSPHAGIA [None]
  - HYPOAESTHESIA [None]
  - MUSCULOSKELETAL PAIN [None]
  - NECK PAIN [None]
  - PAIN IN EXTREMITY [None]
  - SWELLING [None]
  - TINNITUS [None]
